FAERS Safety Report 8872653 (Version 1)
Quarter: 2012Q4

REPORT INFORMATION
  Report Type: Spontaneous
  Country: US (occurrence: None)
  Receive Date: 20121031
  Receipt Date: 20121031
  Transmission Date: 20130627
  Serious: Yes (Disabling, Other)
  Sender: FDA-Public Use
  Company Number: None

PATIENT
  Sex: Female

DRUGS (1)
  1. NALBUPHINE [Suspect]
     Indication: MIGRAINE
     Dates: start: 20120725, end: 20120725

REACTIONS (4)
  - Pain [None]
  - Contusion [None]
  - Muscle atrophy [None]
  - Pigmentation disorder [None]
